FAERS Safety Report 7218647-6 (Version None)
Quarter: 2011Q1

REPORT INFORMATION
  Report Type: 
  Country: None (occurrence: None)
  Receive Date: 20110110
  Receipt Date: 20100802
  Transmission Date: 20110831
  Serious: No
  Sender: FDA-Public Use
  Company Number: US-ABBOTT-10P-163-0661039-00

PATIENT
  Sex: Female
  Weight: 55.842 kg

DRUGS (6)
  1. ADVIL [Concomitant]
     Indication: FIBROMYALGIA
  2. VICODIN [Suspect]
     Indication: PRODUCT USED FOR UNKNOWN INDICATION
  3. ALEVE [Concomitant]
     Indication: MIGRAINE
  4. ATIVAN [Concomitant]
     Indication: ANXIETY
  5. CLARITIN [Suspect]
     Indication: EYE PRURITUS
     Route: 048
     Dates: start: 20100409, end: 20100410
  6. CLARITIN [Suspect]
     Indication: THROAT IRRITATION

REACTIONS (3)
  - DRUG EFFECT DECREASED [None]
  - OVERDOSE [None]
  - SOMNOLENCE [None]
